FAERS Safety Report 13567802 (Version 1)
Quarter: 2017Q2

REPORT INFORMATION
  Report Type: Spontaneous
  Country: DE (occurrence: DE)
  Receive Date: 20170522
  Receipt Date: 20170522
  Transmission Date: 20170830
  Serious: Yes (Other)
  Sender: FDA-Public Use
  Company Number: DE-UCBSA-2017018991

PATIENT
  Age: 0 Year
  Sex: Male
  Weight: 2.3 kg

DRUGS (5)
  1. LEVETIRACETAM. [Suspect]
     Active Substance: LEVETIRACETAM
     Indication: EPILEPSY
     Dosage: 500 MG, 2X/DAY (BID)
     Route: 064
     Dates: start: 20160522, end: 20170117
  2. ZONEGRAN [Suspect]
     Active Substance: ZONISAMIDE
     Indication: EPILEPSY
     Dosage: 200 MG, ONCE DAILY (QD)
     Route: 064
     Dates: start: 20160522, end: 20170117
  3. AMIODARONE [Concomitant]
     Active Substance: AMIODARONE
     Indication: HYPOTENSION
     Dosage: UNK
     Dates: start: 201701
  4. AMIODARONE [Concomitant]
     Active Substance: AMIODARONE
     Indication: TACHYARRHYTHMIA
  5. CARBAMAZEPINE. [Suspect]
     Active Substance: CARBAMAZEPINE
     Indication: EPILEPSY
     Dosage: 500 MG, 2X/DAY (BID)
     Route: 064
     Dates: start: 20160522, end: 20170117

REACTIONS (9)
  - Pulmonary hypertension [Recovered/Resolved]
  - Neonatal pneumonia [Recovered/Resolved]
  - Neonatal hypotension [Recovered/Resolved]
  - Small for dates baby [Unknown]
  - Disseminated intravascular coagulation [Recovered/Resolved]
  - Foetal exposure during pregnancy [Unknown]
  - Respiratory disorder neonatal [Recovered/Resolved]
  - Tachyarrhythmia [Not Recovered/Not Resolved]
  - Premature baby [Recovered/Resolved]

NARRATIVE: CASE EVENT DATE: 20160522
